FAERS Safety Report 4285641-7 (Version None)
Quarter: 2004Q1

REPORT INFORMATION
  Report Type: 
  Country: None (occurrence: None)
  Receive Date: 20040204
  Receipt Date: 20040204
  Transmission Date: 20041129
  Serious: Yes (Life-Threatening, Hospitalization)
  Sender: FDA-Public Use
  Company Number: None

PATIENT
  Age: 60 Year
  Sex: Male
  Weight: 88 kg

DRUGS (11)
  1. FLUDARABINE PHOSPHATE [Suspect]
     Indication: CHEMOTHERAPY
     Dosage: 65 MG QD INTRAVENOUS
     Route: 042
     Dates: start: 20031219, end: 20031213
  2. CYTOXAN [Suspect]
     Dosage: 2.14 GM QD INTRAVENOUS
     Route: 042
     Dates: start: 20031214, end: 20031215
  3. PREVACID [Concomitant]
  4. NEORAL [Concomitant]
  5. ELAVIL [Concomitant]
  6. FLAGYL [Concomitant]
  7. VALTREX [Concomitant]
  8. FLUCONAZOLE [Concomitant]
  9. ZOFRAN [Concomitant]
  10. MYCELEX [Concomitant]
  11. DAPSONE [Concomitant]

REACTIONS (9)
  - ALANINE AMINOTRANSFERASE ABNORMAL [None]
  - ASPARTATE AMINOTRANSFERASE ABNORMAL [None]
  - DIALYSIS [None]
  - DIARRHOEA [None]
  - GRAFT VERSUS HOST DISEASE [None]
  - HYPOCALCAEMIA [None]
  - PYREXIA [None]
  - RENAL FAILURE [None]
  - VOMITING [None]
